FAERS Safety Report 7408509-3 (Version None)
Quarter: 2011Q2

REPORT INFORMATION
  Report Type: 
  Country: None (occurrence: None)
  Receive Date: 20110412
  Receipt Date: 20100909
  Transmission Date: 20111010
  Serious: Yes (Other)
  Sender: FDA-Public Use
  Company Number: US-BAYER-201012391NA

PATIENT
  Age: 18 Year
  Sex: Female
  Weight: 95.238 kg

DRUGS (7)
  1. YAZ [Suspect]
     Indication: PREMENSTRUAL SYNDROME
     Dosage: UNK
     Dates: end: 20090315
  2. AMIDRINE [Concomitant]
     Dosage: UNK
     Dates: start: 20020101
  3. WELCHOL [Concomitant]
     Indication: GASTROOESOPHAGEAL REFLUX DISEASE
     Dosage: 625 MG, QD
  4. MIDRIN [Concomitant]
     Indication: MIGRAINE
     Dosage: UNK UNK, PRN
  5. LIBRAX [Concomitant]
     Indication: GASTROOESOPHAGEAL REFLUX DISEASE
     Dosage: UNK UNK, QD
  6. PRILOSEC [Concomitant]
  7. REGLAN [Concomitant]
     Indication: GASTROOESOPHAGEAL REFLUX DISEASE
     Dosage: 5 MG, QD

REACTIONS (5)
  - CHOLESTEROSIS [None]
  - INJURY [None]
  - CHOLELITHIASIS [None]
  - GALLBLADDER DISORDER [None]
  - CHOLECYSTITIS CHRONIC [None]
